FAERS Safety Report 6053859-9 (Version None)
Quarter: 2009Q1

REPORT INFORMATION
  Report Type: 
  Country: None (occurrence: None)
  Receive Date: 20090127
  Receipt Date: 20090121
  Transmission Date: 20090719
  Serious: Yes (Hospitalization)
  Sender: FDA-Public Use
  Company Number: US-ABBOTT-09P-163-0498977-00

PATIENT
  Sex: Female
  Weight: 79.45 kg

DRUGS (2)
  1. HUMIRA [Suspect]
     Indication: CROHN'S DISEASE
     Route: 058
     Dates: start: 20071001, end: 20071201
  2. HUMIRA [Suspect]
     Route: 058

REACTIONS (5)
  - CONSTIPATION [None]
  - HEADACHE [None]
  - NAUSEA [None]
  - PHOTOPHOBIA [None]
  - SMALL INTESTINAL OBSTRUCTION [None]
